FAERS Safety Report 7618252-3 (Version None)
Quarter: 2011Q3

REPORT INFORMATION
  Report Type: 
  Country: None (occurrence: None)
  Receive Date: 20110718
  Receipt Date: 20110705
  Transmission Date: 20111222
  Serious: Yes (Other)
  Sender: FDA-Public Use
  Company Number: ZA-VIIV HEALTHCARE LIMITED-B0731659A

PATIENT
  Age: 36 Year
  Sex: Female

DRUGS (4)
  1. RITONAVIR [Suspect]
     Indication: ANTIRETROVIRAL THERAPY
     Route: 065
  2. STAVUDINE [Suspect]
     Indication: ANTIRETROVIRAL THERAPY
     Route: 065
  3. LAMIVUDINE-HIV [Suspect]
     Indication: ANTIRETROVIRAL THERAPY
     Route: 065
  4. LOPINAVIR [Suspect]
     Indication: ANTIRETROVIRAL THERAPY
     Route: 065

REACTIONS (4)
  - NODULE [None]
  - ACUTE FEBRILE NEUTROPHILIC DERMATOSIS [None]
  - IMMUNE RECONSTITUTION SYNDROME [None]
  - SKIN LESION [None]
